FAERS Safety Report 6388390-4 (Version None)
Quarter: 2009Q4

REPORT INFORMATION
  Report Type: 
  Country: None (occurrence: None)
  Receive Date: 20091005
  Receipt Date: 20090928
  Transmission Date: 20100525
  Serious: Yes (Hospitalization, Other)
  Sender: FDA-Public Use
  Company Number: DE-ELI_LILLY_AND_COMPANY-DE200909002790

PATIENT
  Sex: Female

DRUGS (2)
  1. BYETTA [Suspect]
     Indication: TYPE 2 DIABETES MELLITUS
     Dosage: 10 UG, 2/D
     Route: 058
     Dates: start: 20070629, end: 20090911
  2. GLIMEPIRIDE [Concomitant]
     Dosage: 2 MG, UNKNOWN (1/2 OF 4MG PER DAY)
     Route: 065
     Dates: start: 20070629

REACTIONS (1)
  - GRAND MAL CONVULSION [None]
